FAERS Safety Report 6943342-8 (Version None)
Quarter: 2010Q3

REPORT INFORMATION
  Report Type: 
  Country: None (occurrence: None)
  Receive Date: 20100826
  Receipt Date: 20100817
  Transmission Date: 20110219
  Serious: Yes (Hospitalization)
  Sender: FDA-Public Use
  Company Number: US-ASTRAZENECA-2010SE38731

PATIENT
  Age: 62 Year
  Sex: Female

DRUGS (6)
  1. SYMBICORT [Suspect]
     Route: 055
  2. ADVAIR DISKUS 100/50 [Suspect]
     Indication: ASTHMA
     Dosage: 500/50MCG, ONE PUFF TWICE DAILY
     Dates: start: 20100401, end: 20100501
  3. ADVAIR DISKUS 100/50 [Suspect]
     Dosage: 115/21ONE PUFF TWICE DAILY
     Dates: start: 20100623, end: 20100707
  4. ADVAIR DISKUS 100/50 [Suspect]
     Dosage: 250/50MCG, TWO PUFFS TWICE DAILY
     Dates: start: 20100707, end: 20100721
  5. ESOMEPRAZOLE MAGNESIUM [Concomitant]
  6. SALBUTAMOL SULFATE [Concomitant]

REACTIONS (5)
  - CANDIDIASIS [None]
  - DRUG INEFFECTIVE [None]
  - NERVOUSNESS [None]
  - OROPHARYNGEAL BLISTERING [None]
  - RESPIRATORY DISORDER [None]
